FAERS Safety Report 12927643 (Version 1)
Quarter: 2016Q4

REPORT INFORMATION
  Report Type: Spontaneous
  Country: None (occurrence: None)
  Receive Date: 20161109
  Receipt Date: 20161109
  Transmission Date: 20170207
  Serious: Yes (Hospitalization)
  Sender: FDA-Public Use
  Company Number: 1936467

PATIENT
  Age: 74 Year
  Sex: Male
  Weight: 63.5 kg

DRUGS (13)
  1. ASHWAGANDA [Concomitant]
  2. VITAMIN B COMPLEX [Concomitant]
     Active Substance: CYANOCOBALAMIN\DEXPANTHENOL\NIACINAMIDE\PYRIDOXINE HYDROCHLORIDE\RIBOFLAVIN 5^-PHOSPHATE SODIUM\THIAMINE HYDROCHLORIDE\VITAMIN B COMPLEX
  3. OCUXANTHIN [Concomitant]
  4. SOOTHANOL X2 [Suspect]
     Active Substance: CAPSAICIN\MENTHOL
     Dosage: 4 TO 5 DROPS TWICE DAILY
     Dates: start: 20160713, end: 20160723
  5. ACID REFLUX HERBAL COMBINATION [Concomitant]
  6. N ACETYL L-CYSTEINE [Concomitant]
  7. GINKGO [Concomitant]
     Active Substance: GINKGO
  8. MAGNESIUM [Concomitant]
     Active Substance: MAGNESIUM
  9. GOTU KOLA [Concomitant]
     Active Substance: GOTU KOLA
  10. HORSE TAIL [Concomitant]
  11. IN CONTROL [Concomitant]
  12. UVA URSI [Concomitant]
  13. BEN THO THYMIN [Concomitant]

REACTIONS (3)
  - Application site burn [None]
  - Incorrect dose administered [None]
  - Application site abscess [None]

NARRATIVE: CASE EVENT DATE: 20160723
